FAERS Safety Report 12316763 (Version 1)
Quarter: 2016Q2

REPORT INFORMATION
  Report Type: Spontaneous
  Country: JP (occurrence: JP)
  Receive Date: 20160429
  Receipt Date: 20160429
  Transmission Date: 20160815
  Serious: Yes (Hospitalization)
  Sender: FDA-Public Use
  Company Number: JP-ROCHE-1749398

PATIENT
  Age: 7 Decade
  Sex: Female

DRUGS (1)
  1. XELODA [Suspect]
     Active Substance: CAPECITABINE
     Indication: BREAST CANCER
     Dosage: DOSAGE IS UNCERTAIN. ?3 DAYS ADMINISTRATION FOLLOWED BY 1 DAYS REST
     Route: 048

REACTIONS (1)
  - Fracture [Unknown]
